FAERS Safety Report 5894234-7 (Version None)
Quarter: 2008Q3

REPORT INFORMATION
  Report Type: 
  Country: None (occurrence: None)
  Receive Date: 20080923
  Receipt Date: 20080304
  Transmission Date: 20090109
  Serious: No
  Sender: FDA-Public Use
  Company Number: US-ASTRAZENECA-2008UW04417

PATIENT
  Age: 59 Year
  Sex: Male
  Weight: 102.5 kg

DRUGS (6)
  1. SEROQUEL [Suspect]
     Indication: BIPOLAR DISORDER
     Route: 048
  2. CRESTOR [Concomitant]
     Route: 048
  3. ATENOLOL [Concomitant]
     Route: 048
  4. SERTRALINE [Concomitant]
  5. AMLOD/BENAZP [Concomitant]
     Dosage: 5-10 MG
  6. CLOZAPAM [Concomitant]

REACTIONS (1)
  - WITHDRAWAL SYNDROME [None]
